FAERS Safety Report 24827599 (Version 3)
Quarter: 2025Q1

REPORT INFORMATION
  Report Type: Spontaneous
  Country: AR (occurrence: AR)
  Receive Date: 20250109
  Receipt Date: 20250206
  Transmission Date: 20250409
  Serious: No
  Sender: PFIZER
  Company Number: AR-PFIZER INC-202500003626

PATIENT
  Age: 13 Year
  Sex: Female

DRUGS (2)
  1. GENOTROPIN [Suspect]
     Active Substance: SOMATROPIN
     Indication: Foetal growth restriction
     Dates: start: 20231015
  2. GENOTROPIN [Suspect]
     Active Substance: SOMATROPIN
     Dates: start: 20231025, end: 20250103

REACTIONS (4)
  - Off label use [Not Recovered/Not Resolved]
  - Drug dose omission by device [Unknown]
  - Device mechanical issue [Not Recovered/Not Resolved]
  - Wrong technique in product usage process [Unknown]

NARRATIVE: CASE EVENT DATE: 20231015
